FAERS Safety Report 7637993-5 (Version None)
Quarter: 2011Q3

REPORT INFORMATION
  Report Type: 
  Country: None (occurrence: None)
  Receive Date: 20110727
  Receipt Date: 20110713
  Transmission Date: 20111222
  Serious: Yes (Hospitalization)
  Sender: FDA-Public Use
  Company Number: US-ELI_LILLY_AND_COMPANY-US201101000455

PATIENT
  Sex: Female

DRUGS (14)
  1. LISINOPRIL [Concomitant]
     Dosage: 20 MG, QD
     Route: 048
  2. NEXIUM [Concomitant]
     Dosage: 40 MG, QD
     Route: 048
  3. SIMVASTATIN [Concomitant]
     Dosage: 80 MG, QD
     Route: 048
  4. COUMADIN [Concomitant]
     Dosage: 2.5 MG, QD
     Route: 048
  5. FORTEO [Suspect]
     Indication: OSTEOPOROSIS
     Dosage: 20 UG, DAILY (1/D)
     Route: 058
     Dates: start: 20101226
  6. ASPIRIN [Concomitant]
     Dosage: 81 MG, QD
     Route: 048
  7. METOPROLOL TARTRATE [Concomitant]
     Dosage: 50 MG, BID
     Route: 048
  8. AMLODIPINE BESYLATE [Concomitant]
     Dosage: 5 MG, UNK
     Route: 048
  9. VITAMIN D [Concomitant]
     Dosage: 1000 IU, BID
     Route: 048
  10. PAXIL [Concomitant]
     Dosage: 12.5 MG, QD
     Route: 048
  11. CALCIUM CARBONATE W/VITAMIN D NOS [Concomitant]
     Dosage: UNK, BID
     Route: 048
  12. FORTEO [Suspect]
     Dosage: 20 UG, DAILY (1/D)
     Route: 058
  13. FORTEO [Suspect]
     Dosage: 20 UG, QD
     Route: 058
  14. SYNTHROID [Concomitant]
     Dosage: 100 UG, QD
     Route: 048

REACTIONS (4)
  - INJECTION SITE HAEMORRHAGE [None]
  - PAIN IN EXTREMITY [None]
  - FALL [None]
  - HUMERUS FRACTURE [None]
